FAERS Safety Report 7142627-2 (Version None)
Quarter: 2010Q4

REPORT INFORMATION
  Report Type: 
  Country: None (occurrence: None)
  Receive Date: 20101207
  Receipt Date: 20101129
  Transmission Date: 20110411
  Serious: Yes (Other)
  Sender: FDA-Public Use
  Company Number: CHPA2010US11305

PATIENT
  Age: 23 Year
  Sex: Female
  Weight: 63.492 kg

DRUGS (1)
  1. MAALOX ADV MAXIMUM STRENGTH ANTACID/ANTIGAS (NCH) [Suspect]
     Indication: DYSPEPSIA
     Dosage: 1 TSP, QD
     Route: 048
     Dates: start: 20100601, end: 20100705

REACTIONS (7)
  - ABDOMINAL PAIN [None]
  - DIARRHOEA [None]
  - DRUG EXPOSURE DURING PREGNANCY [None]
  - GALLBLADDER DISORDER [None]
  - HAEMATEMESIS [None]
  - MALAISE [None]
  - VOMITING [None]
